FAERS Safety Report 22884962 (Version 3)
Quarter: 2024Q4

REPORT INFORMATION
  Report Type: Spontaneous
  Country: JP (occurrence: JP)
  Receive Date: 20230830
  Receipt Date: 20241224
  Transmission Date: 20250115
  Serious: Yes (Hospitalization, Other)
  Sender: MERCK
  Company Number: JP-MSD-M2023-33194

PATIENT
  Age: 40 Year
  Sex: Female

DRUGS (8)
  1. KEYTRUDA [Suspect]
     Active Substance: PEMBROLIZUMAB
     Indication: Triple negative breast cancer
     Dosage: 200 MILLIGRAM, Q3W
     Route: 041
     Dates: start: 20230626, end: 20230626
  2. KEYTRUDA [Suspect]
     Active Substance: PEMBROLIZUMAB
     Indication: BRCA1 gene mutation
  3. BELSOMRA [Concomitant]
     Active Substance: SUVOREXANT
     Indication: Insomnia
     Dosage: UNK
     Route: 048
  4. CARBOPLATIN [Concomitant]
     Active Substance: CARBOPLATIN
     Indication: Triple negative breast cancer
     Dosage: UNK UNK, QW
     Route: 065
     Dates: start: 20230626, end: 2023
  5. CARBOPLATIN [Concomitant]
     Active Substance: CARBOPLATIN
     Indication: BRCA1 gene mutation
  6. PACLITAXEL [Concomitant]
     Active Substance: PACLITAXEL
     Indication: Triple negative breast cancer
     Dosage: UNK UNK, QW
     Route: 065
     Dates: start: 20230626, end: 2023
  7. PACLITAXEL [Concomitant]
     Active Substance: PACLITAXEL
     Indication: BRCA1 gene mutation
  8. LANSOPRAZOLE [Concomitant]
     Active Substance: LANSOPRAZOLE
     Dosage: UNK
     Route: 065
     Dates: end: 202309

REACTIONS (6)
  - Skin disorder [Recovering/Resolving]
  - Immune-mediated pericarditis [Recovering/Resolving]
  - Immune-mediated hepatic disorder [Recovering/Resolving]
  - Stevens-Johnson syndrome [Unknown]
  - Dysuria [Unknown]
  - Mucosal disorder [Unknown]

NARRATIVE: CASE EVENT DATE: 20230724
